FAERS Safety Report 8830494 (Version 2)
Quarter: 2012Q4

REPORT INFORMATION
  Report Type: 
  Country: JP (occurrence: JP)
  Receive Date: 20121009
  Receipt Date: 20121211
  Transmission Date: 20130627
  Serious: Yes (Hospitalization)
  Sender: FDA-Public Use
  Company Number: JP-ELI_LILLY_AND_COMPANY-JP201203006738

PATIENT
  Age: 72 Year
  Sex: Female

DRUGS (4)
  1. FORTEO [Suspect]
     Dosage: UNK
     Route: 058
     Dates: start: 20120319
  2. FORTEO [Suspect]
     Dosage: UNK
     Route: 058
     Dates: start: 20120721
  3. INSULIN [Concomitant]
     Route: 058
  4. ENBREL [Concomitant]
     Route: 058

REACTIONS (5)
  - Vascular injury [Unknown]
  - Vertigo [Recovering/Resolving]
  - Arthralgia [Not Recovered/Not Resolved]
  - Bone pain [Not Recovered/Not Resolved]
  - Visual acuity reduced [Unknown]
